FAERS Safety Report 6596047-X (Version None)
Quarter: 2010Q1

REPORT INFORMATION
  Report Type: 
  Country: None (occurrence: None)
  Receive Date: 20100223
  Receipt Date: 20100218
  Transmission Date: 20100710
  Serious: Yes (Death)
  Sender: FDA-Public Use
  Company Number: PHHY2010IT09902

PATIENT
  Age: 13 Year
  Sex: Female

DRUGS (13)
  1. CYCLOSPORINE [Suspect]
     Indication: STEM CELL TRANSPLANT
     Dosage: UNK
  2. CYCLOSPORINE [Suspect]
     Indication: PROPHYLAXIS AGAINST GRAFT VERSUS HOST DISEASE
  3. AZATHIOPRINE [Suspect]
     Indication: STEM CELL TRANSPLANT
     Dosage: 3 MG/KG DAILY
  4. HYDROXYUREA [Concomitant]
     Indication: STEM CELL TRANSPLANT
     Dosage: 60 MG/KG DAILY
  5. GRANULOCYTE COLONY STIMULATING FACTOR [Concomitant]
     Indication: STEM CELL TRANSPLANT
     Dosage: TWICE WEEKLY
  6. EPOGEN [Concomitant]
     Indication: STEM CELL TRANSPLANT
     Dosage: TWICE WEEKLY
  7. FLUDARABINE [Concomitant]
     Indication: STEM CELL TRANSPLANT
     Dosage: 30 MG/M2/D
  8. BUSULFAN [Concomitant]
     Indication: STEM CELL TRANSPLANT
     Dosage: 1 MG/KG, TID
     Route: 048
  9. CYCLOPHOSPHAMIDE [Concomitant]
     Indication: STEM CELL TRANSPLANT
     Dosage: 50 MG/KG DAILY
     Route: 042
  10. THIOTEPA [Concomitant]
     Indication: STEM CELL TRANSPLANT
     Dosage: 10 MG/KG, UNK
  11. ANTI-THYMOCYTE GLOBULIN NOS [Concomitant]
     Indication: STEM CELL TRANSPLANT
     Dosage: 12.5 MG/KG, UNK
  12. AMPHOTERICINE B, LIPOSOME [Concomitant]
     Indication: ANTIFUNGAL PROPHYLAXIS
     Dosage: (TOTAL DOSE, 200 MG/KG), AND 10 MG/KG THIOTEPA AND 12.5 MG/KG ANTITHYMOCYTE GLOBULIN. ANTIFUNGAL PR
  13. ACYCLOVIR [Concomitant]
     Indication: ANTIVIRAL PROPHYLAXIS
     Dosage: 5 MG/KG, TID

REACTIONS (2)
  - EPSTEIN-BARR VIRUS ASSOCIATED LYMPHOPROLIFERATIVE DISORDER [None]
  - NON-HODGKIN'S LYMPHOMA [None]
